FAERS Safety Report 4405411-6 (Version None)
Quarter: 2004Q3

REPORT INFORMATION
  Report Type: 
  Country: None (occurrence: None)
  Receive Date: 20040723
  Receipt Date: 20030812
  Transmission Date: 20050211
  Serious: No
  Sender: FDA-Public Use
  Company Number: US-GLAXOSMITHKLINE-A0420856A

PATIENT
  Age: 79 Year
  Sex: Male

DRUGS (12)
  1. AVANDIA [Suspect]
     Dosage: 4MG PER DAY
     Route: 048
     Dates: start: 20030812
  2. METFORMIN HCL [Concomitant]
  3. GLIPIZIDE [Concomitant]
  4. METOPROLOL TARTRATE [Concomitant]
  5. NITROGLYCERIN [Concomitant]
  6. ASPIRIN [Concomitant]
  7. DIAZEPAM [Concomitant]
  8. RANITIDINE [Concomitant]
  9. PROSCAR [Concomitant]
  10. FELODIPINE [Concomitant]
  11. LISINOPRIL [Concomitant]
  12. NITROGLYCERIN SL [Concomitant]

REACTIONS (2)
  - FEELING ABNORMAL [None]
  - NAUSEA [None]
